FAERS Safety Report 5324096-8 (Version None)
Quarter: 2007Q2

REPORT INFORMATION
  Report Type: 
  Country: None (occurrence: None)
  Receive Date: 20070514
  Receipt Date: 20060727
  Transmission Date: 20071010
  Serious: No
  Sender: FDA-Public Use
  Company Number: A0601895A

PATIENT
  Age: 75 Year
  Sex: Female
  Weight: 83.6 kg

DRUGS (1)
  1. NABUMETONE [Suspect]
     Indication: RHEUMATOID ARTHRITIS

REACTIONS (2)
  - DRUG INEFFECTIVE [None]
  - THERAPEUTIC RESPONSE DECREASED [None]
